FAERS Safety Report 7210982-0 (Version None)
Quarter: 2011Q1

REPORT INFORMATION
  Report Type: 
  Country: None (occurrence: None)
  Receive Date: 20110105
  Receipt Date: 20101227
  Transmission Date: 20110831
  Serious: Yes (Death)
  Sender: FDA-Public Use
  Company Number: A0902891A

PATIENT
  Age: 52 Year
  Sex: Male

DRUGS (2)
  1. VENTOLIN [Suspect]
     Indication: ASTHMA
     Dates: start: 20100605
  2. ADVAIR [Suspect]
     Indication: ASTHMA
     Dates: start: 20100605

REACTIONS (1)
  - ASTHMA [None]
